FAERS Safety Report 15681802 (Version 1)
Quarter: 2018Q4

REPORT INFORMATION
  Report Type: Spontaneous
  Country: GR (occurrence: GR)
  Receive Date: 20181203
  Receipt Date: 20181203
  Transmission Date: 20190205
  Serious: Yes (Hospitalization)
  Sender: FDA-Public Use
  Company Number: GR-AKORN PHARMACEUTICALS-2018AKN01859

PATIENT
  Age: 20 Year
  Sex: Female
  Weight: 62 kg

DRUGS (1)
  1. ISOTRETINOIN. [Suspect]
     Active Substance: ISOTRETINOIN
     Indication: ACNE
     Dosage: 60 MG, 1X/DAY (3 TABLETS OF 20 MG TAKEN BID)
     Route: 048

REACTIONS (1)
  - Meningitis aseptic [Recovered/Resolved]
